FAERS Safety Report 4327877-2 (Version None)
Quarter: 2004Q1

REPORT INFORMATION
  Report Type: 
  Country: None (occurrence: None)
  Receive Date: 20040325
  Receipt Date: 20040310
  Transmission Date: 20041129
  Serious: Yes (Hospitalization, Other)
  Sender: FDA-Public Use
  Company Number: ZANA001155

PATIENT
  Sex: Male

DRUGS (8)
  1. ZANAFLEX [Suspect]
     Indication: MUSCLE SPASTICITY
     Dosage: 8 MG A DAT ORAL
     Route: 048
     Dates: start: 20040212
  2. DIGOXIN [Suspect]
     Indication: ATRIAL FIBRILLATION
     Dosage: 125 MCGS
     Dates: end: 20040215
  3. MORPHINE [Concomitant]
  4. FLUOXETINE [Concomitant]
  5. SIMVASTATIN [Concomitant]
  6. RAMIPRIL [Concomitant]
  7. WARFARIN SODIUM [Concomitant]
  8. GABAPENTIN [Concomitant]

REACTIONS (1)
  - BRADYCARDIA [None]
